FAERS Safety Report 18847341 (Version 3)
Quarter: 2021Q2

REPORT INFORMATION
  Report Type: Report from Study
  Country: None (occurrence: US)
  Receive Date: 20210204
  Receipt Date: 20210408
  Transmission Date: 20210717
  Serious: Yes (Death, Hospitalization)
  Sender: FDA-Public Use
  Company Number: US-ABBVIE-21K-163-3759366-00

PATIENT
  Age: 72 Year
  Sex: Male
  Weight: 86.26 kg

DRUGS (2)
  1. VENCLEXTA [Suspect]
     Active Substance: VENETOCLAX
     Indication: LYMPHOCYTIC LEUKAEMIA
     Dosage: TAKE FOUR TABLET(S) BY MOUTH EVERY DAY WITH FOOD AND WATER
     Route: 048
     Dates: start: 2020
  2. VENCLEXTA [Suspect]
     Active Substance: VENETOCLAX
     Indication: CHRONIC LYMPHOCYTIC LEUKAEMIA
     Dosage: TAKE FOUR TABLET(S) BY MOUTH EVERY DAY WITH FOOD AND WATER
     Route: 048

REACTIONS (2)
  - Chronic lymphocytic leukaemia [Fatal]
  - Richter^s syndrome [Fatal]

NARRATIVE: CASE EVENT DATE: 202012
